FAERS Safety Report 4651881-8 (Version None)
Quarter: 2005Q2

REPORT INFORMATION
  Report Type: 
  Country: None (occurrence: None)
  Receive Date: 20050504
  Receipt Date: 20050425
  Transmission Date: 20051028
  Serious: Yes (Other)
  Sender: FDA-Public Use
  Company Number: GB-GLAXOSMITHKLINE-B0379081A

PATIENT
  Sex: Male

DRUGS (2)
  1. ZYBAN [Suspect]
     Route: 048
     Dates: start: 20050405
  2. NO CONCURRENT MEDICATION [Concomitant]

REACTIONS (9)
  - AGGRESSION [None]
  - ANOREXIA [None]
  - DEPRESSION [None]
  - EMOTIONAL DISORDER [None]
  - HYPOAESTHESIA [None]
  - INSOMNIA [None]
  - MANIA [None]
  - NIGHT SWEATS [None]
  - PARAESTHESIA [None]
